FAERS Safety Report 5124399-6 (Version None)
Quarter: 2006Q3

REPORT INFORMATION
  Report Type: 
  Country: None (occurrence: None)
  Receive Date: 20060816
  Receipt Date: 20060519
  Transmission Date: 20061208
  Serious: No
  Sender: FDA-Public Use
  Company Number: US200605001005

PATIENT
  Age: 56 Year
  Sex: Male

DRUGS (4)
  1. CIALIS [Suspect]
     Indication: ERECTILE DYSFUNCTION
     Dosage: 20 MG, X1 DOSE UNK, ORAL
     Route: 048
     Dates: start: 20060504, end: 20060504
  2. TOPROL-XL [Concomitant]
  3. PLAVIX [Concomitant]
  4. ACCUPRIL [Concomitant]

REACTIONS (2)
  - HEADACHE [None]
  - HEART RATE INCREASED [None]
